FAERS Safety Report 23594266 (Version 1)
Quarter: 2024Q1

REPORT INFORMATION
  Report Type: Spontaneous
  Country: CN (occurrence: CN)
  Receive Date: 20240305
  Receipt Date: 20240305
  Transmission Date: 20240410
  Serious: Yes (Hospitalization, Other)
  Sender: FDA-Public Use
  Company Number: CN-SA-2024SA068427

PATIENT
  Age: 53 Year
  Sex: Male

DRUGS (3)
  1. OXALIPLATIN [Suspect]
     Active Substance: OXALIPLATIN
     Indication: Rectal cancer stage III
     Dosage: 150 MG ON THE FIRST DAY (D1)
     Route: 042
     Dates: start: 202011
  2. CAPECITABINE [Suspect]
     Active Substance: CAPECITABINE
     Indication: Rectal cancer stage III
     Dosage: 1.5 G, BID D1-D14
     Route: 048
     Dates: start: 202011
  3. SINTILIMAB [Suspect]
     Active Substance: SINTILIMAB
     Indication: Rectal cancer stage III
     Dosage: 200 MG, QD
     Route: 041
     Dates: start: 202011

REACTIONS (2)
  - Drug-induced liver injury [Recovering/Resolving]
  - Pyrexia [Recovering/Resolving]

NARRATIVE: CASE EVENT DATE: 20210101
